FAERS Safety Report 8088545-7 (Version None)
Quarter: 2012Q1

REPORT INFORMATION
  Report Type: 
  Country: None (occurrence: None)
  Receive Date: 20120128
  Receipt Date: 20110407
  Transmission Date: 20120608
  Serious: No
  Sender: FDA-Public Use
  Company Number: US-ABBOTT-11P-163-0717417-00

PATIENT
  Age: 57 Year
  Sex: Female

DRUGS (4)
  1. CALCIUM [Concomitant]
     Indication: BLOOD CALCIUM
     Dosage: DAILY
  2. HUMIRA [Suspect]
     Indication: PSORIATIC ARTHROPATHY
     Dates: start: 20100501
  3. MULTIVITAMIN [Concomitant]
     Indication: VITAMIN SUPPLEMENTATION
     Dosage: DAILY
  4. DIAZEPAM [Concomitant]
     Indication: PAIN
     Dosage: AT BEDTIME

REACTIONS (3)
  - DIARRHOEA [None]
  - FATIGUE [None]
  - INFLUENZA LIKE ILLNESS [None]
